FAERS Safety Report 5282703-2 (Version None)
Quarter: 2007Q1

REPORT INFORMATION
  Report Type: 
  Country: None (occurrence: None)
  Receive Date: 20061226
  Receipt Date: 20060902
  Transmission Date: 20070707
  Serious: No
  Sender: FDA-Public Use
  Company Number: PHEH2006US11481

PATIENT
  Sex: Female

DRUGS (1)
  1. ENABLEX [Suspect]

REACTIONS (4)
  - CONSTIPATION [None]
  - DRY MOUTH [None]
  - JOINT SWELLING [None]
  - OEDEMA PERIPHERAL [None]
